FAERS Safety Report 24219942 (Version 1)
Quarter: 2024Q3

REPORT INFORMATION
  Report Type: Spontaneous
  Country: US (occurrence: US)
  Receive Date: 20240817
  Receipt Date: 20240817
  Transmission Date: 20241017
  Serious: Yes (Other)
  Sender: AMGEN
  Company Number: US-AMGEN-USASP2024159910

PATIENT
  Sex: Male

DRUGS (2)
  1. BEVACIZUMAB [Suspect]
     Active Substance: BEVACIZUMAB
     Indication: Retinopathy of prematurity
     Dosage: 0.625 MILLIGRAM/0.025ML (BILATERAL)
  2. BEVACIZUMAB [Suspect]
     Active Substance: BEVACIZUMAB
     Dosage: 0.625 MILLIGRAM/0.025ML

REACTIONS (7)
  - Glaucoma [Recovered/Resolved]
  - Retinopathy of prematurity [Recovering/Resolving]
  - Hyphaema [Unknown]
  - Drug effective for unapproved indication [Unknown]
  - Surgical failure [Unknown]
  - Chorioretinal folds [Unknown]
  - Off label use [Unknown]
